FAERS Safety Report 8067397-5 (Version None)
Quarter: 2012Q1

REPORT INFORMATION
  Report Type: 
  Country: None (occurrence: None)
  Receive Date: 20120124
  Receipt Date: 20120118
  Transmission Date: 20120608
  Serious: Yes (Hospitalization)
  Sender: FDA-Public Use
  Company Number: JP-PFIZER INC-2011299229

PATIENT
  Age: 58 Year
  Sex: Female
  Weight: 48.6 kg

DRUGS (13)
  1. MAGMITT [Concomitant]
     Indication: CONSTIPATION
     Dosage: 330 MG, 3X/DAY
     Route: 048
     Dates: start: 20111012
  2. OXYCONTIN [Suspect]
     Indication: CANCER PAIN
     Dosage: 5 MG, 2X/DAY
     Route: 048
     Dates: start: 20111012
  3. LOXOPROFEN SODIUM [Concomitant]
     Indication: CANCER PAIN
     Dosage: 60 MG, 3X/DAY
     Route: 048
     Dates: start: 20110927
  4. LYRICA [Suspect]
     Indication: CANCER PAIN
     Dosage: 75 MG, 2X/DAY
     Route: 048
     Dates: start: 20111104
  5. MUCOSTA [Concomitant]
     Indication: GASTRITIS PROPHYLAXIS
     Dosage: 100 MG, 3X/DAY
     Route: 048
     Dates: start: 20110927
  6. XALKORI [Suspect]
     Dosage: 1-LEVEL LOWER DOSE
     Route: 048
     Dates: start: 20111216
  7. OXYCODONE HYDROCHLORIDE [Suspect]
     Indication: CANCER PAIN
     Dosage: 2.5 MG, AS NEEDED
     Route: 048
     Dates: start: 20111012
  8. ALPRAZOLAM [Concomitant]
     Indication: PROPHYLAXIS OF NAUSEA AND VOMITING
     Dosage: 0.4 MG, 2X/DAY
     Route: 048
     Dates: start: 20111004
  9. FAMOTIDINE [Concomitant]
     Indication: PROPHYLAXIS AGAINST GASTROINTESTINAL ULCER
     Dosage: 20 MG, 2X/DAY
     Route: 048
     Dates: start: 20111101
  10. PANTOSIN [Concomitant]
     Indication: CONSTIPATION
     Dosage: 100 MG, 3X/DAY
     Route: 048
     Dates: start: 20111012
  11. PRIMPERAN TAB [Concomitant]
     Indication: NAUSEA
     Dosage: 5 MG, 3X/DAY
     Route: 048
     Dates: start: 20111106
  12. PRIMPERAN TAB [Concomitant]
     Indication: VOMITING
  13. XALKORI [Suspect]
     Indication: NON-SMALL CELL LUNG CANCER
     Dosage: 250 MG, 2X/DAY
     Route: 048
     Dates: start: 20111102, end: 20111207

REACTIONS (1)
  - DECREASED APPETITE [None]
